FAERS Safety Report 19816382 (Version 1)
Quarter: 2021Q3

REPORT INFORMATION
  Report Type: Report from Study
  Country: FR (occurrence: FR)
  Receive Date: 20210909
  Receipt Date: 20210909
  Transmission Date: 20211014
  Serious: Yes (Hospitalization)
  Sender: FDA-Public Use
  Company Number: FR-SERVIER-S21009950

PATIENT

DRUGS (4)
  1. TN UNSPECIFIED [Concomitant]
     Dosage: 5560 MG, D8, D22, D36, D50
     Route: 042
     Dates: start: 20200715, end: 20200831
  2. TN UNSPECIFIED [Concomitant]
     Indication: ACUTE LYMPHOCYTIC LEUKAEMIA
     Dosage: 25 MG, D1 TO D56
     Route: 048
     Dates: start: 20200630, end: 20200906
  3. PEGASPARGASE [Suspect]
     Active Substance: PEGASPARGASE
     Indication: ACUTE LYMPHOCYTIC LEUKAEMIA
     Dosage: NO STUDY DRUG ADMINISTRATION DETAILS PROVIDED (REQUESTED)
     Route: 065
  4. TN UNSPECIFIED [Concomitant]
     Indication: ACUTE LYMPHOCYTIC LEUKAEMIA
     Dosage: 15 MG, D9, D23, D37, D51
     Route: 037
     Dates: start: 20200716, end: 20200901

REACTIONS (1)
  - Bacterial sepsis [Recovered/Resolved]

NARRATIVE: CASE EVENT DATE: 20200707
